FAERS Safety Report 14797285 (Version 1)
Quarter: 2018Q2

REPORT INFORMATION
  Report Type: Spontaneous
  Country: US (occurrence: US)
  Receive Date: 20180424
  Receipt Date: 20180424
  Transmission Date: 20180711
  Serious: Yes (Hospitalization, Other)
  Sender: FDA-Public Use
  Company Number: US-B.I. PHARMACEUTICALS,INC./RIDGEFIELD-2018-BI-021797

PATIENT
  Sex: Female

DRUGS (1)
  1. JARDIANCE [Suspect]
     Active Substance: EMPAGLIFLOZIN
     Indication: TYPE 1 DIABETES MELLITUS
     Dosage: ADMINISTRATION CORRECT? NR(NOT REPORTED) ?ACTION(S) TAKEN WITH PRODUCT: NOT REPORTED
     Route: 065

REACTIONS (2)
  - Off label use [Unknown]
  - Cerebrovascular accident [Unknown]
